FAERS Safety Report 5646494-5 (Version None)
Quarter: 2008Q1

REPORT INFORMATION
  Report Type: 
  Country: None (occurrence: None)
  Receive Date: 20080303
  Receipt Date: 20080219
  Transmission Date: 20080703
  Serious: Yes (Life-Threatening, Hospitalization)
  Sender: FDA-Public Use
  Company Number: DE-NOVOPROD-272391

PATIENT
  Sex: Female

DRUGS (30)
  1. ACTRAPID [Suspect]
     Indication: DRUG USE FOR UNKNOWN INDICATION
     Dosage: UNK IU, QD
     Route: 058
     Dates: start: 20040904, end: 20040906
  2. ACETAMINOPHEN [Concomitant]
     Dosage: 15 ML, QD
     Route: 048
     Dates: start: 20040816, end: 20040816
  3. ACETAMINOPHEN [Concomitant]
     Dosage: 1 UNK, QD
     Route: 054
     Dates: start: 20040819, end: 20040820
  4. PERENTEROL                         /00243701/ [Concomitant]
     Dosage: 2 UNK, TID
     Route: 048
     Dates: start: 20040816, end: 20040816
  5. DIAZEPAM [Concomitant]
     Dosage: 10 MG, QD
     Route: 048
     Dates: start: 20040817, end: 20040817
  6. DIAZEPAM [Concomitant]
     Dosage: 5 MG, QD
     Route: 048
     Dates: start: 20040912, end: 20040912
  7. OXAZEPAM [Concomitant]
     Dosage: 10 MG, QD
     Route: 048
     Dates: start: 20040818, end: 20040818
  8. OXAZEPAM [Concomitant]
     Dosage: 10 MG, QD
     Dates: start: 20040824, end: 20040824
  9. OXAZEPAM [Concomitant]
     Dosage: 10 MG, QD
     Route: 048
     Dates: start: 20040830, end: 20040912
  10. DORMICUM                           /00036201/ [Concomitant]
     Dosage: UNK, QD
     Route: 042
     Dates: start: 20040819, end: 20040819
  11. DORMICUM                           /00036201/ [Concomitant]
     Dosage: UNK, QD
     Route: 042
     Dates: start: 20040830, end: 20040830
  12. DORMICUM                           /00036201/ [Concomitant]
     Dosage: UNK, QD
     Route: 042
     Dates: start: 20040910, end: 20040910
  13. LOPIRIN                            /00384302/ [Concomitant]
     Dosage: 1 TAB, QD
     Route: 048
     Dates: start: 20040819, end: 20040911
  14. CAPTOPRIL [Concomitant]
     Dosage: 1 UNK, QD
     Route: 048
     Dates: start: 20040819, end: 20040913
  15. CIPROBAY                           /00697201/ [Concomitant]
     Dosage: 500 MG, BID
     Route: 048
     Dates: start: 20040823, end: 20040831
  16. CONCOR                             /00802602/ [Concomitant]
     Dosage: 2.5 MG, QD
     Route: 048
     Dates: start: 20040823, end: 20040901
  17. DELIX PLUS [Concomitant]
     Dosage: 2.5 MG, QD
     Route: 048
     Dates: start: 20040823, end: 20040907
  18. OMEPRAZOL                          /00661201/ [Concomitant]
     Dosage: 1 UNK, TID
     Route: 048
     Dates: start: 20040825, end: 20040913
  19. NOVALGIN                           /00039501/ [Concomitant]
     Dosage: 20 GTT, QD
     Route: 048
     Dates: start: 20040830, end: 20040902
  20. REFOBACIN [Concomitant]
     Dosage: 80 MG, TID
     Route: 042
     Dates: start: 20040830, end: 20040902
  21. VANCOMYCIN [Concomitant]
     Dosage: 1 G, QD
     Route: 042
     Dates: start: 20040830, end: 20040905
  22. VANCOMYCIN [Concomitant]
     Dosage: UNK, QD
     Route: 042
     Dates: start: 20040907, end: 20040907
  23. MIDAZOLAM HCL [Concomitant]
     Dosage: 5 MG, QD
     Route: 042
     Dates: start: 20040902, end: 20040902
  24. PROPOFOL [Concomitant]
     Dosage: 30 MG, QD
     Route: 042
     Dates: start: 20040902, end: 20040902
  25. ATROPIN                            /00002801/ [Concomitant]
     Dosage: 1 UNK, QD
     Route: 042
     Dates: start: 20040902, end: 20040902
  26. FURORESE                           /00032601/ [Concomitant]
     Dosage: 40 MG, QD
     Route: 042
     Dates: start: 20040906, end: 20040911
  27. NITRO                              /00003201/ [Concomitant]
     Dosage: 50 MG, QD
     Route: 042
     Dates: start: 20040907, end: 20040911
  28. ROCEPHIN                           /00672201/ [Concomitant]
     Dosage: 2 G, QD
     Route: 042
     Dates: start: 20040910, end: 20040910
  29. CEFTRIAXON                         /00672202/ [Concomitant]
     Dosage: 2 G, QD
     Route: 042
     Dates: start: 20040910, end: 20040910
  30. METOHEXAL                          /00376902/ [Concomitant]
     Dosage: 25 MG, TID
     Dates: start: 20040912

REACTIONS (2)
  - STEVENS-JOHNSON SYNDROME [None]
  - TOXIC EPIDERMAL NECROLYSIS [None]
